FAERS Safety Report 13830218 (Version 3)
Quarter: 2017Q4

REPORT INFORMATION
  Report Type: Spontaneous
  Country: US (occurrence: US)
  Receive Date: 20170803
  Receipt Date: 20171117
  Transmission Date: 20180320
  Serious: Yes (Death)
  Sender: FDA-Public Use
  Company Number: US-SA-2017SA105275

PATIENT
  Age: 84 Year
  Sex: Female

DRUGS (9)
  1. ALIROCUMAB PREFILLED PEN [Suspect]
     Active Substance: ALIROCUMAB
     Indication: HYPOTHYROIDISM
     Dates: start: 20160805
  2. PRALUENT [Suspect]
     Active Substance: ALIROCUMAB
     Indication: HYPOTHYROIDISM
     Route: 058
     Dates: start: 20160805
  3. ALIROCUMAB PREFILLED PEN [Suspect]
     Active Substance: ALIROCUMAB
     Indication: HYPOTHYROIDISM
     Dates: start: 20170310
  4. ALIROCUMAB PREFILLED PEN [Suspect]
     Active Substance: ALIROCUMAB
     Indication: HYPOTHYROIDISM
     Dates: start: 20170310
  5. MONTELUKAST SODIUM. [Concomitant]
     Active Substance: MONTELUKAST SODIUM
  6. PRALUENT [Suspect]
     Active Substance: ALIROCUMAB
     Indication: HYPOTHYROIDISM
     Route: 058
     Dates: start: 20160805
  7. PRALUENT [Suspect]
     Active Substance: ALIROCUMAB
     Indication: HYPOTHYROIDISM
     Route: 058
     Dates: start: 20170310
  8. ALIROCUMAB PREFILLED PEN [Suspect]
     Active Substance: ALIROCUMAB
     Indication: HYPOTHYROIDISM
     Dates: start: 20160805
  9. PRALUENT [Suspect]
     Active Substance: ALIROCUMAB
     Indication: HYPOTHYROIDISM
     Route: 058
     Dates: start: 20170310

REACTIONS (5)
  - Injection site pain [Unknown]
  - Injection site hypersensitivity [Recovered/Resolved]
  - Death [Fatal]
  - Injection site mass [Recovered/Resolved]
  - Injection site bruising [Unknown]

NARRATIVE: CASE EVENT DATE: 2017
